FAERS Safety Report 6074839-3 (Version None)
Quarter: 2009Q1

REPORT INFORMATION
  Report Type: 
  Country: None (occurrence: None)
  Receive Date: 20090212
  Receipt Date: 20090205
  Transmission Date: 20090719
  Serious: Yes (Other)
  Sender: FDA-Public Use
  Company Number: PHHY2009DE04411

PATIENT
  Sex: Female

DRUGS (1)
  1. EUCREAS [Suspect]
     Indication: DIABETES MELLITUS
     Dosage: 1 DF, BID
     Route: 048
     Dates: start: 20090101

REACTIONS (5)
  - BLOOD CREATININE INCREASED [None]
  - HYPOTONIA [None]
  - MALAISE [None]
  - NAUSEA [None]
  - RENAL FAILURE [None]
